FAERS Safety Report 23474501 (Version 1)
Quarter: 2024Q1

REPORT INFORMATION
  Report Type: Report from Study
  Country: US (occurrence: US)
  Receive Date: 20240204
  Receipt Date: 20240204
  Transmission Date: 20240410
  Serious: Yes (Other)
  Sender: FDA-Public Use
  Company Number: US-EXELIXIS-CABO-23063058

PATIENT
  Age: 54 Year
  Sex: Female

DRUGS (3)
  1. CABOMETYX [Suspect]
     Active Substance: CABOZANTINIB S-MALATE
     Indication: Renal cancer
     Dosage: 20 MG, QD
     Route: 048
     Dates: start: 202212
  2. CABOMETYX [Suspect]
     Active Substance: CABOZANTINIB S-MALATE
     Dosage: 20 MG, QOD
     Route: 048
     Dates: start: 202301
  3. LENVIMA [Suspect]
     Active Substance: LENVATINIB
     Indication: Renal cancer
     Dosage: 18 MG

REACTIONS (13)
  - Blood pressure increased [Recovering/Resolving]
  - Blood thyroid stimulating hormone abnormal [Unknown]
  - Rash pruritic [Unknown]
  - Pruritus [Unknown]
  - Dry throat [Unknown]
  - Dry skin [Unknown]
  - Epistaxis [Unknown]
  - Headache [Unknown]
  - Mouth ulceration [Unknown]
  - Skin ulcer [Unknown]
  - Insomnia [Unknown]
  - Nausea [Recovered/Resolved]
  - Inappropriate schedule of product administration [Unknown]

NARRATIVE: CASE EVENT DATE: 20230101
